FAERS Safety Report 14829556 (Version 1)
Quarter: 2018Q2

REPORT INFORMATION
  Report Type: Spontaneous
  Country: TR (occurrence: TR)
  Receive Date: 20180430
  Receipt Date: 20180430
  Transmission Date: 20180711
  Serious: Yes (Other)
  Sender: FDA-Public Use
  Company Number: PHHY2018TR061463

PATIENT
  Age: 20 Year
  Sex: Male

DRUGS (4)
  1. PREDNISOLONE ACETATE. [Concomitant]
     Active Substance: PREDNISOLONE ACETATE
     Indication: CHOROIDAL EFFUSION
     Dosage: 5 GTT, QD
     Route: 065
  2. ATROPINE. [Concomitant]
     Active Substance: ATROPINE
     Indication: CHOROIDAL EFFUSION
     Dosage: 2 GTT, QD
     Route: 065
  3. NEPAFENAC [Concomitant]
     Active Substance: NEPAFENAC
     Indication: CHOROIDAL EFFUSION
     Dosage: 5 GTT, QD
     Route: 047
  4. METHYLPREDNISOLONE. [Suspect]
     Active Substance: METHYLPREDNISOLONE
     Indication: CHOROIDAL EFFUSION
     Dosage: 1 MG/KG, UNK
     Route: 048

REACTIONS (6)
  - Visual impairment [Unknown]
  - Product use in unapproved indication [Unknown]
  - Erythema [Unknown]
  - Hypotonia [Unknown]
  - Glaucoma [Unknown]
  - Acne [Unknown]
